FAERS Safety Report 4619528-4 (Version None)
Quarter: 2005Q2

REPORT INFORMATION
  Report Type: 
  Country: None (occurrence: None)
  Receive Date: 20050321
  Receipt Date: 20040719
  Transmission Date: 20051028
  Serious: Yes (Hospitalization, Other)
  Sender: FDA-Public Use
  Company Number: 2004-07-1065

PATIENT
  Age: 39 Year
  Sex: Female
  Weight: 43.0917 kg

DRUGS (9)
  1. PEG-INTRON [Suspect]
     Indication: HEPATITIS C
     Dosage: SEE IMAGE
     Dates: start: 20021001, end: 20030801
  2. PEG-INTRON [Suspect]
     Indication: HEPATITIS C
     Dosage: SEE IMAGE
     Dates: start: 20030901, end: 20040201
  3. PEG-INTRON [Suspect]
     Indication: HEPATITIS C
     Dosage: SEE IMAGE
     Dates: start: 20040301
  4. REBETOL [Suspect]
     Indication: HEPATITIS C
     Dosage: SEE IMAGE
     Route: 048
     Dates: start: 20021001, end: 20030801
  5. REBETOL [Suspect]
     Indication: HEPATITIS C
     Dosage: SEE IMAGE
     Route: 048
     Dates: start: 20030901, end: 20040201
  6. REBETOL [Suspect]
     Indication: HEPATITIS C
     Dosage: SEE IMAGE
     Route: 048
     Dates: start: 20040301
  7. TRAZODONE HCL [Concomitant]
  8. KLONOPIN [Concomitant]
  9. NEURONTIN [Concomitant]

REACTIONS (6)
  - AGGRESSION [None]
  - ANAEMIA [None]
  - ANGER [None]
  - ANOREXIA [None]
  - CONFUSIONAL STATE [None]
  - WEIGHT DECREASED [None]
